APPROVED DRUG PRODUCT: OXYMORPHONE HYDROCHLORIDE
Active Ingredient: OXYMORPHONE HYDROCHLORIDE
Strength: 15MG
Dosage Form/Route: TABLET, EXTENDED RELEASE;ORAL
Application: A200822 | Product #005
Applicant: HIKMA PHARMACEUTICALS USA INC
Approved: Jul 15, 2013 | RLD: No | RS: No | Type: DISCN